FAERS Safety Report 25723692 (Version 1)
Quarter: 2025Q3

REPORT INFORMATION
  Report Type: Spontaneous
  Country: EU (occurrence: EU)
  Receive Date: 20250825
  Receipt Date: 20250825
  Transmission Date: 20251021
  Serious: Yes (Other)
  Sender: NOVARTIS
  Company Number: EU-ADIENNEP-2025AD000589

PATIENT
  Sex: Female

DRUGS (8)
  1. CYCLOSPORINE [Suspect]
     Active Substance: CYCLOSPORINE
     Indication: Prophylaxis against graft versus host disease
     Route: 065
     Dates: start: 2023, end: 2023
  2. CYCLOSPORINE [Suspect]
     Active Substance: CYCLOSPORINE
     Dosage: 200 MG, QD
     Route: 065
     Dates: start: 2023
  3. THIOTEPA [Suspect]
     Active Substance: THIOTEPA
     Indication: Allogenic stem cell transplantation
     Route: 065
     Dates: start: 2023, end: 2023
  4. FLUDARABINE [Suspect]
     Active Substance: FLUDARABINE PHOSPHATE
     Indication: Allogenic stem cell transplantation
     Route: 065
     Dates: start: 2023, end: 2023
  5. CYCLOPHOSPHAMIDE [Suspect]
     Active Substance: CYCLOPHOSPHAMIDE
     Indication: Allogenic stem cell transplantation
     Route: 065
     Dates: start: 2023, end: 2023
  6. LAPINE T-LYMPHOCYTE IMMUNE GLOBULIN [Suspect]
     Active Substance: LAPINE T-LYMPHOCYTE IMMUNE GLOBULIN
     Indication: Prophylaxis against graft versus host disease
     Route: 065
     Dates: start: 2023, end: 2023
  7. METHOTREXATE [Suspect]
     Active Substance: METHOTREXATE
     Indication: Prophylaxis against graft versus host disease
     Route: 065
     Dates: start: 2023, end: 2023
  8. LETERMOVIR [Suspect]
     Active Substance: LETERMOVIR
     Indication: Product used for unknown indication
     Route: 065
     Dates: start: 2023

REACTIONS (4)
  - Rash morbilliform [Unknown]
  - Acute graft versus host disease in skin [Recovered/Resolved]
  - Deep vein thrombosis [Unknown]
  - Pyrexia [Unknown]
